FAERS Safety Report 7338221-0 (Version None)
Quarter: 2011Q1

REPORT INFORMATION
  Report Type: 
  Country: None (occurrence: None)
  Receive Date: 20110308
  Receipt Date: 20110302
  Transmission Date: 20110831
  Serious: No
  Sender: FDA-Public Use
  Company Number: US-PFIZER INC-2011046893

PATIENT
  Sex: Male
  Weight: 106 kg

DRUGS (3)
  1. MULTI-VITAMINS [Concomitant]
     Dosage: UNK
  2. PRISTIQ [Suspect]
     Indication: DEPRESSION
     Dosage: 100 MG, 1X/DAY
     Route: 048
     Dates: start: 20100101
  3. WELLBUTRIN [Suspect]
     Indication: DEPRESSION
     Dosage: 300 MG, 1X/DAY
     Route: 048
     Dates: end: 20100101

REACTIONS (4)
  - HYPOAESTHESIA [None]
  - ARTHRALGIA [None]
  - PAIN IN EXTREMITY [None]
  - HEADACHE [None]
